FAERS Safety Report 22388264 (Version 2)
Quarter: 2023Q2

REPORT INFORMATION
  Report Type: Spontaneous
  Country: US (occurrence: US)
  Receive Date: 20230531
  Receipt Date: 20230621
  Transmission Date: 20230722
  Serious: Yes (Hospitalization)
  Sender: FDA-Public Use
  Company Number: US-CATALYST PHARMACEUTICALS, INC-US-CATA-23-00277

PATIENT
  Sex: Female

DRUGS (2)
  1. FIRDAPSE [Suspect]
     Active Substance: AMIFAMPRIDINE PHOSPHATE
     Indication: Myasthenic syndrome
     Dosage: 5 MG THREE TIMES DAILY, TITRATING UP
     Route: 048
     Dates: start: 20230517, end: 2023
  2. FIRDAPSE [Suspect]
     Active Substance: AMIFAMPRIDINE PHOSPHATE
     Dosage: 10 MILLIGRAM, TID
     Route: 065
     Dates: start: 2023

REACTIONS (6)
  - Dehydration [Unknown]
  - Diarrhoea [Unknown]
  - Paraesthesia oral [Unknown]
  - Paraesthesia [Unknown]
  - Headache [Unknown]
  - Nausea [Unknown]

NARRATIVE: CASE EVENT DATE: 20230101
